FAERS Safety Report 4360129-3 (Version None)
Quarter: 2004Q2

REPORT INFORMATION
  Report Type: 
  Country: None (occurrence: None)
  Receive Date: 20040519
  Receipt Date: 20040507
  Transmission Date: 20050107
  Serious: Yes (Death)
  Sender: FDA-Public Use
  Company Number: GB-JNJFOC-20040403943

PATIENT
  Sex: Male
  Weight: 64 kg

DRUGS (5)
  1. RISPERDAL CONSTA [Suspect]
     Indication: SCHIZOPHRENIA
     Route: 030
  2. CHLORPROMAZINE [Concomitant]
     Route: 065
  3. CHLORPROMAZINE [Concomitant]
     Indication: DRUG USE FOR UNKNOWN INDICATION
     Dosage: 75MG PER NIGHT
     Route: 065
  4. OLANZAPINE [Concomitant]
     Indication: DRUG USE FOR UNKNOWN INDICATION
     Dosage: 5MG PER NIGHT
     Route: 065
  5. PROCYCLIDINE HYDROCHLORIDE 2MG TAB [Concomitant]

REACTIONS (4)
  - AORTIC RUPTURE [None]
  - CIRCULATORY COLLAPSE [None]
  - DYSPNOEA [None]
  - PULSE PRESSURE DECREASED [None]
